FAERS Safety Report 9314148 (Version 3)
Quarter: 2013Q3

REPORT INFORMATION
  Report Type: Spontaneous
  Country: US (occurrence: US)
  Receive Date: 20130529
  Receipt Date: 20130705
  Transmission Date: 20140515
  Serious: No
  Sender: FDA-Public Use
  Company Number: US-009507513-1305USA006816

PATIENT
  Age: 67 Year
  Sex: Male
  Weight: 75.28 kg

DRUGS (5)
  1. ASMANEX TWISTHALER [Suspect]
     Dosage: 220 MCG/ 2 PUFFS TWICE A DAY
     Route: 055
     Dates: start: 201206
  2. KLONOPIN [Concomitant]
  3. SEROQUEL [Concomitant]
  4. LUVOX [Concomitant]
  5. FOSAMAX [Concomitant]
     Route: 048

REACTIONS (15)
  - Eructation [Not Recovered/Not Resolved]
  - Product quality issue [Unknown]
  - Dyspepsia [Not Recovered/Not Resolved]
  - Pollakiuria [Not Recovered/Not Resolved]
  - Diarrhoea [Unknown]
  - Cough [Not Recovered/Not Resolved]
  - Product label issue [Unknown]
  - Insomnia [Unknown]
  - Product closure removal difficult [Unknown]
  - Pain [Unknown]
  - Elderly [Unknown]
  - Malaise [Unknown]
  - Vomiting [Unknown]
  - Retching [Unknown]
  - Exposure to violent event [Unknown]
